FAERS Safety Report 5724625-6 (Version None)
Quarter: 2008Q2

REPORT INFORMATION
  Report Type: 
  Country: None (occurrence: None)
  Receive Date: 20080428
  Receipt Date: 20080416
  Transmission Date: 20081010
  Serious: No
  Sender: FDA-Public Use
  Company Number: 2008-175653-NL

PATIENT
  Age: 29 Year
  Sex: Female

DRUGS (2)
  1. ETONOGESTREL [Suspect]
     Dates: start: 20000101, end: 20030101
  2. ETONOGESTREL [Suspect]
     Dates: start: 20030101, end: 20060101

REACTIONS (6)
  - AMENORRHOEA [None]
  - DIZZINESS [None]
  - FATIGUE [None]
  - NAUSEA [None]
  - PITUITARY TUMOUR BENIGN [None]
  - PREGNANCY [None]
